FAERS Safety Report 12220522 (Version 1)
Quarter: 2016Q1

REPORT INFORMATION
  Report Type: Spontaneous
  Country: US (occurrence: US)
  Receive Date: 20160330
  Receipt Date: 20160330
  Transmission Date: 20160526
  Serious: No
  Sender: FDA-Public Use
  Company Number: US-MYLANLABS-2015M1023131

PATIENT
  Age: 54 Year
  Sex: Female
  Weight: 53.61 kg

DRUGS (5)
  1. EMSAM [Suspect]
     Active Substance: SELEGILINE
     Indication: DEPRESSION
     Dosage: 1/6 OF A PATCH, CHANGING DAILY
     Route: 062
     Dates: start: 20140619
  2. EMSAM [Suspect]
     Active Substance: SELEGILINE
     Indication: ANXIETY
     Dosage: 1/4 OF A PATCH, CHANGED DAILY
     Route: 062
     Dates: start: 20150619, end: 20150630
  3. BANDEROL NUTRAMEDIX [Concomitant]
     Indication: LYME DISEASE
     Dosage: UNK
     Dates: end: 2015
  4. ESTROGEN [Concomitant]
     Active Substance: ESTRONE\SUS SCROFA OVARY
  5. DOXYCYCLINE. [Concomitant]
     Active Substance: DOXYCYCLINE
     Indication: LYME DISEASE
     Dosage: UNK
     Dates: end: 2015

REACTIONS (7)
  - Application site reaction [Recovering/Resolving]
  - Application site pruritus [Recovering/Resolving]
  - Wrong technique in product usage process [Not Recovered/Not Resolved]
  - Application site pain [Recovering/Resolving]
  - Application site scar [Not Recovered/Not Resolved]
  - Application site rash [Recovering/Resolving]
  - Application site erythema [Recovering/Resolving]

NARRATIVE: CASE EVENT DATE: 201503
